FAERS Safety Report 10749564 (Version 1)
Quarter: 2015Q1

REPORT INFORMATION
  Report Type: Spontaneous
  Country: US (occurrence: US)
  Receive Date: 20150129
  Receipt Date: 20150129
  Transmission Date: 20150721
  Serious: Yes (Hospitalization, Other)
  Sender: FDA-Public Use
  Company Number: US-GLAXOSMITHKLINE-A0855520A

PATIENT
  Age: 68 Year
  Sex: Male

DRUGS (4)
  1. AZILECT [Concomitant]
     Active Substance: RASAGILINE MESYLATE
  2. REQUIP [Suspect]
     Active Substance: ROPINIROLE HYDROCHLORIDE
     Indication: PARKINSONISM
     Dosage: 3 MG, 6D
     Route: 048
     Dates: start: 200711
  3. REQUIP [Suspect]
     Active Substance: ROPINIROLE HYDROCHLORIDE
     Dosage: UNK
     Route: 048
  4. CARBIDOPA. [Concomitant]
     Active Substance: CARBIDOPA

REACTIONS (5)
  - Fall [Not Recovered/Not Resolved]
  - Tremor [Unknown]
  - Feeling abnormal [Recovered/Resolved]
  - Hip fracture [Not Recovered/Not Resolved]
  - Tremor [Recovered/Resolved]

NARRATIVE: CASE EVENT DATE: 201403
